FAERS Safety Report 18120400 (Version 1)
Quarter: 2020Q3

REPORT INFORMATION
  Report Type: Spontaneous
  Country: HK (occurrence: HK)
  Receive Date: 20200806
  Receipt Date: 20200806
  Transmission Date: 20201103
  Serious: Yes (Death, Other)
  Sender: FDA-Public Use
  Company Number: HK-BAYER-2020-158620

PATIENT
  Age: 56 Year
  Sex: Male

DRUGS (10)
  1. STIVARGA [Suspect]
     Active Substance: REGORAFENIB
     Indication: METASTASES TO LYMPH NODES
  2. STIVARGA [Suspect]
     Active Substance: REGORAFENIB
     Indication: METASTASES TO LIVER
     Dosage: 120 MG, QD
     Route: 048
     Dates: start: 202001, end: 202002
  3. STIVARGA [Suspect]
     Active Substance: REGORAFENIB
     Indication: METASTASES TO BONE
  4. NIVOLUMAB [Concomitant]
     Active Substance: NIVOLUMAB
     Indication: METASTASES TO BONE
  5. STIVARGA [Suspect]
     Active Substance: REGORAFENIB
     Indication: METASTASES TO LUNG
  6. STIVARGA [Suspect]
     Active Substance: REGORAFENIB
     Indication: RECTAL CANCER RECURRENT
     Dosage: 80 MG, QD
     Route: 048
     Dates: start: 201909, end: 202001
  7. NIVOLUMAB [Concomitant]
     Active Substance: NIVOLUMAB
     Indication: RECTAL CANCER RECURRENT
     Dosage: 3MG/KG
     Dates: start: 201909, end: 202001
  8. NIVOLUMAB [Concomitant]
     Active Substance: NIVOLUMAB
     Indication: METASTASES TO LIVER
     Dosage: 480 MG, Q4WK
     Dates: start: 202001
  9. NIVOLUMAB [Concomitant]
     Active Substance: NIVOLUMAB
     Indication: METASTASES TO LUNG
  10. NIVOLUMAB [Concomitant]
     Active Substance: NIVOLUMAB
     Indication: METASTASES TO LYMPH NODES

REACTIONS (9)
  - Metastases to central nervous system [None]
  - Death [Fatal]
  - Metastases to bone [None]
  - Rash [None]
  - Palmar-plantar erythrodysaesthesia syndrome [None]
  - Aphasia [None]
  - Rectal cancer [None]
  - Carcinoembryonic antigen increased [None]
  - Off label use [None]

NARRATIVE: CASE EVENT DATE: 2019
